FAERS Safety Report 18338277 (Version 1)
Quarter: 2020Q4

REPORT INFORMATION
  Report Type: Spontaneous
  Country: IL (occurrence: IL)
  Receive Date: 20201002
  Receipt Date: 20201002
  Transmission Date: 20210113
  Serious: Yes (Other)
  Sender: FDA-Public Use
  Company Number: IL-PFIZER INC-2020372956

PATIENT
  Sex: Female

DRUGS (1)
  1. LUSTRAL [Suspect]
     Active Substance: SERTRALINE HYDROCHLORIDE
     Dosage: UNK
     Dates: start: 202006

REACTIONS (2)
  - Retinal detachment [Unknown]
  - Retinal tear [Unknown]

NARRATIVE: CASE EVENT DATE: 2020
